FAERS Safety Report 8995387 (Version 1)
Quarter: 2013Q1

REPORT INFORMATION
  Report Type: Spontaneous
  Country: US (occurrence: US)
  Receive Date: 20130103
  Receipt Date: 20130103
  Transmission Date: 20140127
  Serious: No
  Sender: FDA-Public Use
  Company Number: US-ABBOTT-12P-163-0996149-00

PATIENT
  Sex: Female

DRUGS (4)
  1. SYNTHROID [Suspect]
     Indication: BASEDOW^S DISEASE
     Dates: start: 201209
  2. SYNTHROID [Suspect]
     Dates: start: 201209
  3. LIOTHYRONINE [Suspect]
     Indication: THYROID DISORDER
     Dates: start: 201209
  4. ALPRAZOLAM [Suspect]
     Indication: PRODUCT USED FOR UNKNOWN INDICATION

REACTIONS (7)
  - Dizziness [Unknown]
  - Balance disorder [Unknown]
  - Nausea [Unknown]
  - Dysphagia [Unknown]
  - Oropharyngeal pain [Unknown]
  - Hypersomnia [Unknown]
  - Headache [Unknown]
